FAERS Safety Report 9741959 (Version 1)
Quarter: 2013Q4

REPORT INFORMATION
  Report Type: Spontaneous
  Country: US (occurrence: US)
  Receive Date: 20131210
  Receipt Date: 20131210
  Transmission Date: 20140711
  Serious: No
  Sender: FDA-Public Use
  Company Number: US-PFIZER INC-2013349402

PATIENT
  Age: 59 Year
  Sex: Female

DRUGS (1)
  1. XALKORI [Suspect]
     Indication: BREAST CANCER
     Dosage: 250 MG, DAILY
     Dates: start: 20130412

REACTIONS (3)
  - Off label use [Unknown]
  - Disease progression [Unknown]
  - Breast cancer [Unknown]
